FAERS Safety Report 18183758 (Version 3)
Quarter: 2020Q4

REPORT INFORMATION
  Report Type: Report from Study
  Country: GB (occurrence: GB)
  Receive Date: 20200822
  Receipt Date: 20201231
  Transmission Date: 20210113
  Serious: Yes (Death, Hospitalization)
  Sender: FDA-Public Use
  Company Number: NVSC2020GB229654

PATIENT
  Age: 61 Year
  Sex: Male

DRUGS (3)
  1. SANDOSTATIN LAR DEPOT [Suspect]
     Active Substance: OCTREOTIDE ACETATE
     Dosage: 30 MG, Q4W
     Route: 030
  2. SANDOSTATIN LAR DEPOT [Suspect]
     Active Substance: OCTREOTIDE ACETATE
     Indication: NEUROENDOCRINE TUMOUR
     Dosage: 30 MG, Q4W
     Route: 030
     Dates: start: 20190726
  3. SANDOSTATIN LAR DEPOT [Suspect]
     Active Substance: OCTREOTIDE ACETATE
     Dosage: 30 MG, Q4W
     Route: 030

REACTIONS (11)
  - Wound haemorrhage [Unknown]
  - Blood pressure decreased [Unknown]
  - Weight decreased [Unknown]
  - Cyanosis [Unknown]
  - Wound complication [Unknown]
  - Abscess [Unknown]
  - Confusional state [Unknown]
  - Death [Fatal]
  - Respiratory rate increased [Unknown]
  - Radial pulse abnormal [Unknown]
  - Pain [Unknown]

NARRATIVE: CASE EVENT DATE: 20201226
